FAERS Safety Report 12244940 (Version 2)
Quarter: 2016Q4

REPORT INFORMATION
  Report Type: Report from Study
  Country: IN (occurrence: IN)
  Receive Date: 20160407
  Receipt Date: 20161021
  Transmission Date: 20170207
  Serious: Yes (Death, Other)
  Sender: FDA-Public Use
  Company Number: PHHY2015IN148494

PATIENT
  Age: 70 Year
  Sex: Male

DRUGS (1)
  1. GLIVEC [Suspect]
     Active Substance: IMATINIB MESYLATE
     Indication: CHRONIC MYELOID LEUKAEMIA
     Dosage: 400 MG, UNK
     Route: 065

REACTIONS (6)
  - Osteomyelitis [Unknown]
  - Oedema peripheral [Unknown]
  - Pain in extremity [Unknown]
  - Sarcoma [Unknown]
  - Second primary malignancy [Unknown]
  - Death [Fatal]

NARRATIVE: CASE EVENT DATE: 20161015
